FAERS Safety Report 7722419-3 (Version None)
Quarter: 2011Q3

REPORT INFORMATION
  Report Type: 
  Country: None (occurrence: None)
  Receive Date: 20110831
  Receipt Date: 20110829
  Transmission Date: 20111222
  Serious: No
  Sender: FDA-Public Use
  Company Number: US-TEVA-298443USA

PATIENT
  Sex: Female
  Weight: 63.56 kg

DRUGS (3)
  1. DIPHENHYDRAMINE HYDROCHLORIDE [Interacting]
     Indication: SLEEP DISORDER
     Dosage: 12.5 MILLIGRAM;
  2. AZILECT [Suspect]
     Indication: PARKINSON'S DISEASE
     Dates: start: 20110612, end: 20110719
  3. SINEMET [Concomitant]
     Indication: PARKINSON'S DISEASE
     Dosage: 10/100 MG

REACTIONS (9)
  - BALANCE DISORDER [None]
  - HYPOTONIA [None]
  - DRUG INTERACTION [None]
  - WEIGHT DECREASED [None]
  - HEADACHE [None]
  - NERVOUS SYSTEM DISORDER [None]
  - HALLUCINATIONS, MIXED [None]
  - NEURALGIA [None]
  - MUSCULAR WEAKNESS [None]
